FAERS Safety Report 5771667-0 (Version None)
Quarter: 2008Q2

REPORT INFORMATION
  Report Type: 
  Country: None (occurrence: None)
  Receive Date: 20080613
  Receipt Date: 20080609
  Transmission Date: 20081010
  Serious: Yes (Other)
  Sender: FDA-Public Use
  Company Number: DE-GENENTECH-259757

PATIENT
  Sex: Female

DRUGS (5)
  1. XOLAIR [Suspect]
     Indication: ASTHMA
     Dosage: 300 MG, Q2W
     Route: 058
     Dates: start: 20080305, end: 20080402
  2. XOLAIR [Suspect]
     Dosage: 450 MG, Q2W
     Route: 058
  3. VIANI [Concomitant]
     Indication: DRUG USE FOR UNKNOWN INDICATION
  4. BEROTEC [Concomitant]
     Indication: DRUG USE FOR UNKNOWN INDICATION
  5. BRONCHORETARD [Concomitant]
     Indication: DRUG USE FOR UNKNOWN INDICATION

REACTIONS (1)
  - PYREXIA [None]
